FAERS Safety Report 4754292-X (Version None)
Quarter: 2005Q3

REPORT INFORMATION
  Report Type: 
  Country: None (occurrence: None)
  Receive Date: 20050825
  Receipt Date: 20050815
  Transmission Date: 20060218
  Serious: Yes (Other)
  Sender: FDA-Public Use
  Company Number: 2005S1000811

PATIENT
  Age: 61 Year
  Sex: Female
  Weight: 61.6892 kg

DRUGS (1)
  1. INOMAX [Suspect]
     Indication: LUNG DISORDER
     Dosage: 15 PPM;CONT;INH
     Route: 055
     Dates: start: 20050813, end: 20050815

REACTIONS (1)
  - WRONG DRUG ADMINISTERED [None]
